FAERS Safety Report 9007479 (Version 1)
Quarter: 2013Q1

REPORT INFORMATION
  Report Type: Spontaneous
  Country: US (occurrence: US)
  Receive Date: 20130111
  Receipt Date: 20130111
  Transmission Date: 20140127
  Serious: Yes (Other)
  Sender: FDA-Public Use
  Company Number: US-009507513-0907USA03601

PATIENT
  Age: 5 Year
  Sex: Female
  Weight: 37.2 kg

DRUGS (2)
  1. SINGULAIR [Suspect]
     Indication: ASTHMA
     Dosage: 4 MG, QPM
     Route: 048
     Dates: start: 20080819, end: 20081004
  2. SINGULAIR [Suspect]
     Indication: SEASONAL ALLERGY

REACTIONS (8)
  - Affect lability [Unknown]
  - Aggression [Unknown]
  - Anxiety [Unknown]
  - Decreased appetite [Unknown]
  - Decreased interest [Unknown]
  - Depressed mood [Unknown]
  - Fear [Unknown]
  - Hypersomnia [Unknown]
